FAERS Safety Report 11907987 (Version 3)
Quarter: 2016Q3

REPORT INFORMATION
  Report Type: Spontaneous
  Country: GB (occurrence: GB)
  Receive Date: 20160111
  Receipt Date: 20160928
  Transmission Date: 20161109
  Serious: Yes (Hospitalization, Other)
  Sender: FDA-Public Use
  Company Number: GB-BRISTOL-MYERS SQUIBB COMPANY-11723939

PATIENT
  Sex: Male
  Weight: 2.5 kg

DRUGS (8)
  1. VIRAMUNE [Suspect]
     Active Substance: NEVIRAPINE
     Indication: PRODUCT USED FOR UNKNOWN INDICATION
     Dosage: 200 MG, QD
     Route: 064
     Dates: start: 199906, end: 20011022
  2. VIDEX [Suspect]
     Active Substance: DIDANOSINE
     Indication: PRODUCT USED FOR UNKNOWN INDICATION
     Dosage: 200 MG, BID
     Route: 064
     Dates: start: 199906, end: 20011022
  3. FOLIC ACID. [Concomitant]
     Active Substance: FOLIC ACID
     Indication: PRODUCT USED FOR UNKNOWN INDICATION
     Dosage: 1 DF, QD
     Route: 064
  4. ZERIT [Suspect]
     Active Substance: STAVUDINE
     Indication: PRODUCT USED FOR UNKNOWN INDICATION
     Dosage: 40 MG, BID
     Route: 064
     Dates: start: 199706, end: 20010501
  5. ABACAVIR SULFATE. [Suspect]
     Active Substance: ABACAVIR SULFATE
     Indication: PRODUCT USED FOR UNKNOWN INDICATION
     Dosage: 300 MG, BID
     Route: 064
     Dates: start: 200103, end: 20011022
  6. ZIDOVUDINE. [Suspect]
     Active Substance: ZIDOVUDINE
     Indication: PRODUCT USED FOR UNKNOWN INDICATION
     Dosage: 250 MG, BID
     Route: 064
     Dates: start: 20010501, end: 20011022
  7. SEPTRIN [Concomitant]
     Active Substance: SULFAMETHOXAZOLE\TRIMETHOPRIM
     Indication: PRODUCT USED FOR UNKNOWN INDICATION
     Dosage: 960 MG, QD
     Route: 064
  8. FERROUS SULFATE ANHYDROUS. [Concomitant]
     Active Substance: FERROUS SULFATE ANHYDROUS
     Indication: PRODUCT USED FOR UNKNOWN INDICATION
     Dosage: 1 DF, QD
     Route: 064

REACTIONS (6)
  - Foetal distress syndrome [Unknown]
  - Foetal exposure during pregnancy [Unknown]
  - Blood insulin increased [Unknown]
  - Nervous system disorder [Unknown]
  - Small for dates baby [Unknown]
  - Hypoglycaemia neonatal [Recovered/Resolved with Sequelae]

NARRATIVE: CASE EVENT DATE: 200110
